FAERS Safety Report 5043599-7 (Version None)
Quarter: 2006Q2

REPORT INFORMATION
  Report Type: 
  Country: None (occurrence: None)
  Receive Date: 20060628
  Receipt Date: 20060609
  Transmission Date: 20061013
  Serious: Yes (Hospitalization)
  Sender: FDA-Public Use
  Company Number: 001#2#2006-00208

PATIENT
  Sex: Male

DRUGS (3)
  1. ISOSORBIDE DINITRATE [Suspect]
     Indication: ANAL FISSURE
     Dosage: TOPICAL
     Route: 061
  2. DELIX PLUS (HYDROCHLOROTHIAZIDE, RAMIPRIL) [Suspect]
     Dosage: 1 DF (1 DF IN 1 DAY (S) )
  3. BISOPROLOL FUMARATE [Concomitant]

REACTIONS (7)
  - ANORECTAL DISORDER [None]
  - BLOOD PRESSURE INCREASED [None]
  - DIZZINESS [None]
  - HEADACHE [None]
  - HEART RATE INCREASED [None]
  - VENOUS THROMBOSIS [None]
  - VOMITING [None]
